FAERS Safety Report 20839503 (Version 1)
Quarter: 2022Q2

REPORT INFORMATION
  Report Type: Spontaneous
  Country: US (occurrence: US)
  Receive Date: 20220517
  Receipt Date: 20220517
  Transmission Date: 20220720
  Serious: No
  Sender: FDA-Public Use
  Company Number: US-CELGENE-USA-20220303561

PATIENT
  Age: 80 Year
  Sex: Male
  Weight: 79 kg

DRUGS (27)
  1. REVLIMID [Suspect]
     Active Substance: LENALIDOMIDE
     Indication: Plasma cell myeloma
     Route: 048
     Dates: start: 20210428
  2. REVLIMID [Suspect]
     Active Substance: LENALIDOMIDE
     Route: 048
     Dates: start: 202106
  3. REVLIMID [Suspect]
     Active Substance: LENALIDOMIDE
     Route: 048
     Dates: start: 202203
  4. REVLIMID [Suspect]
     Active Substance: LENALIDOMIDE
     Dosage: FREQ : 21 DAYS FOLLOWED BY 7 DAYS OFF
     Route: 048
  5. CARVEDILOL [Concomitant]
     Active Substance: CARVEDILOL
     Indication: Product used for unknown indication
     Dosage: FREQUENCY TEXT: NOT PROVIDED
     Route: 048
  6. DEXAMETHASONE [Concomitant]
     Active Substance: DEXAMETHASONE
     Indication: Product used for unknown indication
     Dosage: FREQUENCY TEXT: NOT PROVIDED
     Route: 065
  7. ATORVASTATIN [Concomitant]
     Active Substance: ATORVASTATIN
     Indication: Product used for unknown indication
     Dosage: FREQUENCY TEXT: NOT PROVIDED
     Route: 065
  8. MONTELUKAST [Concomitant]
     Active Substance: MONTELUKAST SODIUM
     Indication: Product used for unknown indication
     Dosage: FREQUENCY TEXT: NOT PROVIDED
     Route: 048
  9. VENTOLIN [Concomitant]
     Active Substance: ALBUTEROL SULFATE
     Indication: Product used for unknown indication
     Dosage: FREQUENCY TEXT: NOT PROVIDED
     Route: 065
  10. COLACE [Concomitant]
     Active Substance: DOCUSATE SODIUM
     Indication: Product used for unknown indication
     Dosage: FREQUENCY TEXT: NOT PROVIDED
     Route: 048
  11. Calcium 600mg tablet [Concomitant]
     Indication: Product used for unknown indication
     Route: 065
  12. cinnamon 500mg capsule [Concomitant]
     Indication: Product used for unknown indication
     Route: 065
  13. CoQ10 400mg capsule [Concomitant]
     Indication: Product used for unknown indication
     Route: 065
  14. Ginger root 550mg capsules [Concomitant]
     Indication: Product used for unknown indication
     Route: 065
  15. magnesium 250mg tablet [Concomitant]
     Indication: Product used for unknown indication
     Route: 065
  16. vitamin A 10000u capsule [Concomitant]
     Indication: Product used for unknown indication
     Dosage: DOSE:10000U
     Route: 065
  17. vitamin B complex tablets [Concomitant]
     Indication: Product used for unknown indication
     Route: 065
  18. vitamin C 1000mg tablets [Concomitant]
     Indication: Product used for unknown indication
     Route: 065
  19. Vitamin D 1000iu softgels [Concomitant]
     Indication: Product used for unknown indication
     Route: 065
  20. Vitamin E 1000u [Concomitant]
     Indication: Product used for unknown indication
     Route: 065
  21. acyclovir 200mg capsules [Concomitant]
     Indication: Product used for unknown indication
     Route: 065
  22. ADVAIR DISKUS [Concomitant]
     Active Substance: FLUTICASONE PROPIONATE\SALMETEROL XINAFOATE
     Indication: Product used for unknown indication
     Dosage: DOSE:100/50
     Route: 065
  23. dicyclomine 10mg capsules [Concomitant]
     Indication: Product used for unknown indication
     Route: 065
  24. Metamucil powder [Concomitant]
     Indication: Product used for unknown indication
     Route: 065
  25. MUCINEX [Concomitant]
     Active Substance: GUAIFENESIN
     Indication: Product used for unknown indication
     Route: 065
  26. ondansetron 4mg tablets [Concomitant]
     Indication: Product used for unknown indication
     Route: 065
  27. Turmeric 500mg capsules [Concomitant]
     Indication: Product used for unknown indication
     Route: 065

REACTIONS (4)
  - Fatigue [Unknown]
  - Abdominal discomfort [Unknown]
  - Nausea [Unknown]
  - Platelet count decreased [Unknown]
